FAERS Safety Report 7530493-2 (Version None)
Quarter: 2011Q2

REPORT INFORMATION
  Report Type: 
  Country: None (occurrence: None)
  Receive Date: 20110607
  Receipt Date: 20110601
  Transmission Date: 20111010
  Serious: Yes (Hospitalization)
  Sender: FDA-Public Use
  Company Number: NL-ABBOTT-11P-114-0729793-00

PATIENT
  Sex: Male

DRUGS (12)
  1. DUSPATALIN RETARD [Concomitant]
     Indication: PRODUCT USED FOR UNKNOWN INDICATION
     Dosage: TWICE DAILY 2 CAPSULES
     Dates: start: 20100921
  2. MEBERVERINE HCL RETARD [Concomitant]
     Indication: PRODUCT USED FOR UNKNOWN INDICATION
     Dosage: TWICE DAILY 2 CAPSULES
     Route: 048
     Dates: start: 20100922, end: 20110524
  3. MEBERVERINE [Concomitant]
     Indication: PRODUCT USED FOR UNKNOWN INDICATION
     Dosage: TWICE DAILY 2 TABLETS
     Route: 048
     Dates: start: 20110524
  4. SULFASALAZINE [Concomitant]
     Indication: PRODUCT USED FOR UNKNOWN INDICATION
     Dosage: TWICE DAILY 2 TABLETS
     Dates: start: 20110524
  5. NEXIUM [Concomitant]
     Indication: PRODUCT USED FOR UNKNOWN INDICATION
     Route: 048
     Dates: start: 20110104, end: 20110524
  6. METOPROLOL SUCCINATE RET [Concomitant]
     Indication: PRODUCT USED FOR UNKNOWN INDICATION
     Route: 048
     Dates: start: 20110524
  7. SULFASALAZINE [Concomitant]
     Indication: PRODUCT USED FOR UNKNOWN INDICATION
     Dosage: TWICE DAILY 2 TABLETS
     Route: 048
     Dates: start: 20100921
  8. MELOXICAM [Concomitant]
     Indication: PRODUCT USED FOR UNKNOWN INDICATION
     Route: 048
     Dates: start: 20110524
  9. ESOMEPRAZOLE MAGNESIUM [Concomitant]
     Indication: PRODUCT USED FOR UNKNOWN INDICATION
     Route: 048
     Dates: start: 20110524
  10. METOCLOPRAMIDE HYDROCHLORIDE [Concomitant]
     Indication: PRODUCT USED FOR UNKNOWN INDICATION
     Dosage: 3 TIMES DAILY 3 TABLETS
     Route: 048
     Dates: start: 20110523
  11. HUMIRA [Suspect]
     Indication: RHEUMATOID ARTHRITIS
     Route: 051
     Dates: start: 20101111, end: 20110522
  12. FELODIPINE RETARD [Concomitant]
     Indication: PRODUCT USED FOR UNKNOWN INDICATION
     Route: 048
     Dates: start: 20110524

REACTIONS (1)
  - GASTROINTESTINAL INFLAMMATION [None]
